FAERS Safety Report 4363365-5 (Version None)
Quarter: 2004Q2

REPORT INFORMATION
  Report Type: 
  Country: None (occurrence: None)
  Receive Date: 20040524
  Receipt Date: 20020516
  Transmission Date: 20050107
  Serious: Yes (Hospitalization, Disabling)
  Sender: FDA-Public Use
  Company Number: US-MERCK-0205USA02140

PATIENT
  Age: 53 Year
  Sex: Female
  Weight: 56 kg

DRUGS (11)
  1. ALBUTEROL [Concomitant]
     Route: 055
  2. TRINALIN [Concomitant]
     Route: 065
  3. KLONOPIN [Concomitant]
     Indication: PANIC ATTACK
     Route: 065
     Dates: start: 20000101, end: 20001203
  4. CLONIDINE [Concomitant]
     Route: 065
  5. CYCLOBENZAPRINE HYDROCHLORIDE [Concomitant]
     Indication: MUSCLE RELAXANT THERAPY
     Route: 048
     Dates: start: 20000911
  6. CYCLOBENZAPRINE HYDROCHLORIDE [Concomitant]
     Indication: ANALGESIC EFFECT
     Route: 048
     Dates: start: 20000911
  7. PREMPRO [Concomitant]
     Route: 065
     Dates: start: 19980101, end: 20010401
  8. RELAFEN [Concomitant]
     Route: 048
  9. VIOXX [Suspect]
     Indication: MYOFASCIAL PAIN SYNDROME
     Route: 048
     Dates: start: 20001103, end: 20001203
  10. VIOXX [Suspect]
     Indication: FIBROMYALGIA
     Route: 048
     Dates: start: 20001103, end: 20001203
  11. TRIAMTERENE [Concomitant]
     Route: 065

REACTIONS (22)
  - ANGINA PECTORIS [None]
  - ARTHRALGIA [None]
  - BLOOD PRESSURE DECREASED [None]
  - CEREBROVASCULAR ACCIDENT [None]
  - CHEST PAIN [None]
  - DYSARTHRIA [None]
  - ELECTROCARDIOGRAM QT PROLONGED [None]
  - ELECTROCARDIOGRAM ST-T CHANGE [None]
  - FACIAL PALSY [None]
  - HEADACHE [None]
  - HEART RATE IRREGULAR [None]
  - HEMIPARESIS [None]
  - HYPERTENSIVE CRISIS [None]
  - HYPERTONIA [None]
  - HYPOKALAEMIA [None]
  - HYPOTONIA [None]
  - INJURY [None]
  - LACUNAR INFARCTION [None]
  - PAIN IN EXTREMITY [None]
  - RESPIRATORY RATE INCREASED [None]
  - RHINITIS [None]
  - SINUSITIS [None]
